FAERS Safety Report 25138206 (Version 1)
Quarter: 2025Q1

REPORT INFORMATION
  Report Type: Spontaneous
  Country: US (occurrence: US)
  Receive Date: 20250330
  Receipt Date: 20250330
  Transmission Date: 20250409
  Serious: No
  Sender: SANOFI AVENTIS
  Company Number: US-SA-2025SA090449

PATIENT
  Age: 49 Year
  Sex: Female

DRUGS (4)
  1. KEVZARA [Suspect]
     Active Substance: SARILUMAB
     Indication: Rheumatoid vasculitis
     Dosage: 200 MG, QOW
     Route: 058
     Dates: start: 202502
  2. KEVZARA [Suspect]
     Active Substance: SARILUMAB
     Indication: Immunomodulatory therapy
  3. KEVZARA [Suspect]
     Active Substance: SARILUMAB
     Indication: Immunosuppressant drug therapy
  4. KEVZARA [Suspect]
     Active Substance: SARILUMAB
     Indication: Rheumatoid arthritis

REACTIONS (3)
  - Fatigue [Unknown]
  - Nausea [Unknown]
  - Product use in unapproved indication [Unknown]

NARRATIVE: CASE EVENT DATE: 20250101
